FAERS Safety Report 23064633 (Version 2)
Quarter: 2024Q1

REPORT INFORMATION
  Report Type: Spontaneous
  Country: FR (occurrence: FR)
  Receive Date: 20231013
  Receipt Date: 20240216
  Transmission Date: 20240410
  Serious: Yes (Hospitalization)
  Sender: FDA-Public Use
  Company Number: FR-SUN PHARMACEUTICAL INDUSTRIES LTD-2023RR-412446

PATIENT
  Age: 71 Year
  Sex: Male
  Weight: 78 kg

DRUGS (6)
  1. ACETAMINOPHEN [Suspect]
     Active Substance: ACETAMINOPHEN
     Indication: Poisoning
     Dosage: UNK
     Route: 048
     Dates: start: 20230411, end: 20230411
  2. DIAZEPAM [Suspect]
     Active Substance: DIAZEPAM
     Indication: Poisoning deliberate
     Dosage: 60 MILLIGRAM, UNK
     Route: 048
     Dates: start: 20230411, end: 20230411
  3. MIANSERIN HYDROCHLORIDE [Suspect]
     Active Substance: MIANSERIN HYDROCHLORIDE
     Indication: Poisoning deliberate
     Dosage: 2 DOSAGE FORM, UNK
     Route: 048
     Dates: start: 20230411, end: 20230411
  4. COLCHICINE [Suspect]
     Active Substance: COLCHICINE
     Indication: Poisoning deliberate
     Dosage: 10 DOSAGE FORM, UNK
     Route: 048
     Dates: start: 20230411, end: 20230411
  5. FOLIC ACID [Suspect]
     Active Substance: FOLIC ACID
     Indication: Poisoning deliberate
     Dosage: 75 MILLIGRAM, UNK
     Route: 048
     Dates: start: 20230411, end: 20230411
  6. TRAMADOL [Suspect]
     Active Substance: TRAMADOL\TRAMADOL HYDROCHLORIDE
     Indication: Poisoning deliberate
     Dosage: 4 DOSAGE FORM, UNK
     Route: 048
     Dates: start: 20230411, end: 20230411

REACTIONS (4)
  - Hepatocellular injury [Recovered/Resolved]
  - Psychomotor skills impaired [Recovered/Resolved]
  - Neutropenia [Recovering/Resolving]
  - Hypotension [Recovered/Resolved]

NARRATIVE: CASE EVENT DATE: 20230411
